FAERS Safety Report 4906113-X (Version None)
Quarter: 2006Q1

REPORT INFORMATION
  Report Type: 
  Country: None (occurrence: None)
  Receive Date: 20060209
  Receipt Date: 20060207
  Transmission Date: 20060701
  Serious: Yes (Hospitalization)
  Sender: FDA-Public Use
  Company Number: FR-JNJFOC-20060101978

PATIENT
  Age: 84 Year
  Sex: Female
  Weight: 48 kg

DRUGS (5)
  1. CAELYX [Suspect]
     Route: 042
  2. CAELYX [Suspect]
     Route: 042
  3. CAELYX [Suspect]
     Route: 042
  4. CARBOPLATIN [Concomitant]
     Route: 042
  5. ZOPHREN [Concomitant]
     Route: 042

REACTIONS (2)
  - BLOOD PRESSURE INCREASED [None]
  - INFUSION RELATED REACTION [None]
